FAERS Safety Report 7129691-1 (Version None)
Quarter: 2010Q4

REPORT INFORMATION
  Report Type: 
  Country: None (occurrence: None)
  Receive Date: 20101130
  Receipt Date: 20101126
  Transmission Date: 20110411
  Serious: Yes (Death, Hospitalization)
  Sender: FDA-Public Use
  Company Number: PHHY2010FR75091

PATIENT
  Sex: Male

DRUGS (1)
  1. CGP 57148B T35717+ [Suspect]

REACTIONS (4)
  - FEBRILE NEUTROPENIA [None]
  - LACTIC ACIDOSIS [None]
  - MULTI-ORGAN FAILURE [None]
  - SEPTIC SHOCK [None]
